FAERS Safety Report 6861022-4 (Version None)
Quarter: 2010Q3

REPORT INFORMATION
  Report Type: 
  Country: None (occurrence: None)
  Receive Date: 20100720
  Receipt Date: 20100709
  Transmission Date: 20110219
  Serious: No
  Sender: FDA-Public Use
  Company Number: AU-JNJFOC-20100703674

PATIENT
  Sex: Male
  Weight: 75 kg

DRUGS (1)
  1. DURAGESIC-100 [Suspect]
     Indication: CANCER PAIN
     Route: 062

REACTIONS (2)
  - APPLICATION SITE EROSION [None]
  - WRONG TECHNIQUE IN DRUG USAGE PROCESS [None]
